FAERS Safety Report 4715708-8 (Version None)
Quarter: 2005Q3

REPORT INFORMATION
  Report Type: 
  Country: None (occurrence: None)
  Receive Date: 20050718
  Receipt Date: 20050712
  Transmission Date: 20060218
  Serious: Yes (Hospitalization)
  Sender: FDA-Public Use
  Company Number: US-ABBOTT-05P-163-0305545-00

PATIENT
  Sex: Female

DRUGS (5)
  1. HUMIRA [Suspect]
     Indication: RHEUMATOID ARTHRITIS
     Route: 058
     Dates: start: 20040101, end: 20050426
  2. HUMIRA [Suspect]
     Route: 058
     Dates: start: 20050601
  3. PROPACET 100 [Concomitant]
     Indication: OSTEOPOROSIS
     Route: 048
  4. PREDNISONE [Concomitant]
     Indication: RHEUMATOID ARTHRITIS
     Route: 048
  5. LORAZEPAM [Concomitant]
     Indication: INSOMNIA
     Route: 048
     Dates: start: 20040101

REACTIONS (4)
  - FALL [None]
  - FEMUR FRACTURE [None]
  - HEADACHE [None]
  - LIMB CRUSHING INJURY [None]
